FAERS Safety Report 16176767 (Version 1)
Quarter: 2019Q2

REPORT INFORMATION
  Report Type: Spontaneous
  Country: US (occurrence: US)
  Receive Date: 20190409
  Receipt Date: 20190409
  Transmission Date: 20190711
  Serious: No
  Sender: FDA-Public Use
  Company Number: US-GLAXOSMITHKLINE-US2019GSK054484

PATIENT
  Sex: Male

DRUGS (2)
  1. VENTOLIN HFA [Suspect]
     Active Substance: ALBUTEROL SULFATE
  2. ALBUTEROL SULFATE INHALATION POWDER [Suspect]
     Active Substance: ALBUTEROL SULFATE
     Route: 055

REACTIONS (4)
  - Wrong technique in product usage process [Unknown]
  - Wrong technique in device usage process [Unknown]
  - Product dose omission [Unknown]
  - Overdose [Unknown]

NARRATIVE: CASE EVENT DATE: 20190325
